FAERS Safety Report 9016293 (Version 1)
Quarter: 2013Q1

REPORT INFORMATION
  Report Type: Spontaneous
  Country: CH (occurrence: CH)
  Receive Date: 20130116
  Receipt Date: 20130116
  Transmission Date: 20140127
  Serious: Yes (Other)
  Sender: FDA-Public Use
  Company Number: CH-B.I. PHARMACEUTICALS,INC./RIDGEFIELD-2013-AP-00017SI

PATIENT
  Age: 82 Year
  Sex: Male

DRUGS (8)
  1. MAPELOR [Suspect]
     Indication: BENIGN PROSTATIC HYPERPLASIA
     Dosage: 400 MCG
     Route: 048
  2. JANUVIA [Suspect]
     Indication: TYPE 2 DIABETES MELLITUS
     Route: 048
  3. SIMVASTATIN [Suspect]
     Indication: HYPERCHOLESTEROLAEMIA
  4. FERRUM HAUSMANN [Suspect]
     Indication: IRON DEFICIENCY
     Route: 048
  5. NEXIUM [Suspect]
     Indication: GASTROOESOPHAGEAL REFLUX DISEASE
     Route: 048
  6. HYDROCHLOROTHIAZIDE\LISINOPRIL [Suspect]
     Indication: ESSENTIAL HYPERTENSION
     Dosage: STRENGTH: 20/12.5 MILLIGRAM
     Route: 048
  7. ASPIRIN CARDIO [Suspect]
     Route: 048
  8. AMLODIPIN [Suspect]
     Route: 048

REACTIONS (1)
  - Pemphigus [Unknown]
